FAERS Safety Report 10247914 (Version 2)
Quarter: 2014Q3

REPORT INFORMATION
  Report Type: Report from Study
  Country: ES (occurrence: ES)
  Receive Date: 20140619
  Receipt Date: 20140701
  Transmission Date: 20150326
  Serious: Yes (Hospitalization)
  Sender: FDA-Public Use
  Company Number: ES-TEVA-487132ISR

PATIENT
  Age: 69 Year
  Sex: Male
  Weight: 74 kg

DRUGS (8)
  1. RITUXIMAB [Suspect]
     Active Substance: RITUXIMAB
     Indication: DIFFUSE LARGE B-CELL LYMPHOMA STAGE III
     Dosage: 375 MG/M2 DAILY; TEMPORARILY INTERRUPTED, STOPPED ON 11-JUN-2014 AND RESTARTED ON 18-JUN-2014
     Route: 042
     Dates: start: 20140319
  2. SIMVASTATIN. [Concomitant]
     Active Substance: SIMVASTATIN
     Indication: HYPERTENSION
     Route: 048
  3. DOXORUBICINE [Suspect]
     Active Substance: DOXORUBICIN
     Indication: DIFFUSE LARGE B-CELL LYMPHOMA STAGE III
     Dosage: 50 MG/M2 DAILY; TEMPORARILY INTERRUPTED, STOPPED ON 11-JUN-2014 AND RESTARTED ON 18-JUN-2014
     Route: 042
     Dates: start: 20140319
  4. VINCRISTINA TEVA 1MG/ML [Suspect]
     Active Substance: VINCRISTINE
     Indication: DIFFUSE LARGE B-CELL LYMPHOMA STAGE III
     Dosage: 1.4 MG/M2 DAILY; TEMPORARILY INTERRUPTED, STOPPED ON 11-JUN-2014 AND RESTARTED ON 18-JUN-2014
     Route: 042
     Dates: start: 20140319
  5. PREDNISONE. [Suspect]
     Active Substance: PREDNISONE
     Indication: DIFFUSE LARGE B-CELL LYMPHOMA STAGE III
     Dosage: 60 MG/M2 DAILY; TEMPORARILY INTERRUPTED, STOPPED ON 11-JUN-2014 AND RESTARTED ON 18-JUN-2014
     Route: 048
     Dates: start: 20140319
  6. DUTASTERIDE [Concomitant]
     Active Substance: DUTASTERIDE
     Indication: BENIGN PROSTATIC HYPERPLASIA
     Route: 048
  7. CYCLOPHOSPHAMIDE. [Suspect]
     Active Substance: CYCLOPHOSPHAMIDE
     Indication: DIFFUSE LARGE B-CELL LYMPHOMA STAGE III
     Dosage: 750 MG/M2 DAILY; TEMPORARILY INTERRUPTED, STOPPED ON 11-JUN-2014 AND RESTARTED ON 18-JUN-2014
     Route: 042
     Dates: start: 20140319
  8. TAMSULOSIN [Concomitant]
     Active Substance: TAMSULOSIN
     Indication: BENIGN PROSTATIC HYPERPLASIA
     Route: 048

REACTIONS (1)
  - Cellulitis [Recovered/Resolved]

NARRATIVE: CASE EVENT DATE: 20140604
